FAERS Safety Report 20707409 (Version 2)
Quarter: 2022Q2

REPORT INFORMATION
  Report Type: Spontaneous
  Country: US (occurrence: US)
  Receive Date: 20220413
  Receipt Date: 20220607
  Transmission Date: 20220721
  Serious: No
  Sender: FDA-Public Use
  Company Number: US-BRISTOL-MYERS SQUIBB COMPANY-2022-016380

PATIENT
  Age: 70 Year
  Sex: Male

DRUGS (1)
  1. REVLIMID [Suspect]
     Active Substance: LENALIDOMIDE
     Indication: Plasma cell myeloma
     Dosage: 25 MILLIGRAM, DAILY (14 DAYS ON AND 7 DAYS OFF)
     Route: 048
     Dates: start: 20220204

REACTIONS (3)
  - Oedema peripheral [Unknown]
  - Asthenia [Unknown]
  - Diarrhoea [Unknown]
